FAERS Safety Report 12182316 (Version 1)
Quarter: 2016Q1

REPORT INFORMATION
  Report Type: Spontaneous
  Country: US (occurrence: US)
  Receive Date: 20160316
  Receipt Date: 20160316
  Transmission Date: 20160526
  Serious: No
  Sender: FDA-Public Use
  Company Number: US-HOSPIRA-2708213

PATIENT

DRUGS (2)
  1. STERILE WATER [Suspect]
     Active Substance: WATER
     Indication: MEDICATION DILUTION
     Dosage: NOT REPORTED
  2. DANTROLENE [Concomitant]
     Active Substance: DANTROLENE
     Indication: HYPERTHERMIA MALIGNANT
     Route: 065

REACTIONS (2)
  - Expired product administered [Recovered/Resolved]
  - No adverse event [None]
